FAERS Safety Report 25933821 (Version 1)
Quarter: 2025Q4

REPORT INFORMATION
  Report Type: Spontaneous
  Country: US (occurrence: US)
  Receive Date: 20251017
  Receipt Date: 20251017
  Transmission Date: 20260118
  Serious: No
  Sender: ABBVIE
  Company Number: US-ABBVIE-6506827

PATIENT

DRUGS (2)
  1. SYNTHROID [Suspect]
     Active Substance: LEVOTHYROXINE SODIUM
     Indication: Hypothyroidism
     Route: 048
  2. LEVOTHYROXINE [Suspect]
     Active Substance: LEVOTHYROXINE
     Indication: Product used for unknown indication
     Route: 065
     Dates: start: 2005, end: 2025

REACTIONS (4)
  - Thyroxine decreased [Unknown]
  - Adverse drug reaction [Unknown]
  - Tri-iodothyronine decreased [Unknown]
  - Therapeutic product effect incomplete [Unknown]
